FAERS Safety Report 22530006 (Version 1)
Quarter: 2023Q2

REPORT INFORMATION
  Report Type: Spontaneous
  Country: IL (occurrence: IL)
  Receive Date: 20230607
  Receipt Date: 20230607
  Transmission Date: 20230721
  Serious: Yes (Death, Other)
  Sender: FDA-Public Use
  Company Number: IL-AMGEN-ISRSP2023093450

PATIENT

DRUGS (2)
  1. BEVACIZUMAB [Suspect]
     Active Substance: BEVACIZUMAB
     Indication: Cervix carcinoma stage IV
     Dosage: UNK
     Route: 065
  2. PEMBROLIZUMAB [Concomitant]
     Active Substance: PEMBROLIZUMAB
     Indication: Cervix carcinoma stage IV
     Dosage: UNK

REACTIONS (11)
  - Death [Fatal]
  - Cervix carcinoma recurrent [Fatal]
  - Cervix cancer metastatic [Fatal]
  - Genitourinary symptom [Unknown]
  - Female reproductive tract disorder [Unknown]
  - Gastrointestinal disorder [Unknown]
  - Fatigue [Unknown]
  - Pelvic pain [Unknown]
  - Urogenital fistula [Unknown]
  - Vaginal stricture [Unknown]
  - Therapy partial responder [Unknown]
